FAERS Safety Report 5015596-9 (Version None)
Quarter: 2006Q2

REPORT INFORMATION
  Report Type: 
  Country: None (occurrence: None)
  Receive Date: 20060525
  Receipt Date: 20060515
  Transmission Date: 20061013
  Serious: Yes (Other)
  Sender: FDA-Public Use
  Company Number: 2006064188

PATIENT
  Sex: Female
  Weight: 3.0291 kg

DRUGS (1)
  1. ROLAIDS SOFT CHEWS VANILLA CREME (CALCIUM CARBONATE) [Suspect]
     Indication: DRUG EXPOSURE DURING PREGNANCY
     Dosage: 2 - 3 SOFT CHEWS DAILY, PLACENTAL
     Route: 050
     Dates: start: 20050701, end: 20060201

REACTIONS (3)
  - DRUG EXPOSURE DURING PREGNANCY [None]
  - PREMATURE BABY [None]
  - SLEEP APNOEA SYNDROME [None]
